FAERS Safety Report 5452315-6 (Version None)
Quarter: 2007Q3

REPORT INFORMATION
  Report Type: 
  Country: None (occurrence: None)
  Receive Date: 20070912
  Receipt Date: 20070912
  Transmission Date: 20080115
  Serious: No
  Sender: FDA-Public Use
  Company Number: None

PATIENT
  Age: 54 Year
  Sex: Female
  Weight: 106.1417 kg

DRUGS (1)
  1. AMLODIPINE-BENAZEPRIL 10/20 TEV 10-20 TEV NEW DRUG STRENGTH TEVA, USA [Suspect]
     Indication: BLOOD PRESSURE INCREASED
     Dosage: 10-20 ONE CAPSULE EVERY
     Dates: start: 20070828, end: 20070831

REACTIONS (2)
  - FEELING HOT [None]
  - PRURITUS [None]
